FAERS Safety Report 14920928 (Version 5)
Quarter: 2018Q4

REPORT INFORMATION
  Report Type: Report from Study
  Country: US (occurrence: US)
  Receive Date: 20180521
  Receipt Date: 20181008
  Transmission Date: 20190204
  Serious: Yes (Hospitalization)
  Sender: FDA-Public Use
  Company Number: US-ACTELION-A-NJ2016-130453

PATIENT
  Age: 77 Year
  Sex: Female
  Weight: 111.11 kg

DRUGS (5)
  1. OPSUMIT [Suspect]
     Active Substance: MACITENTAN
     Dosage: 10 MG, QD
     Route: 048
  2. XARELTO [Concomitant]
     Active Substance: RIVAROXABAN
  3. OPSUMIT [Suspect]
     Active Substance: MACITENTAN
     Indication: PULMONARY ARTERIAL HYPERTENSION
     Dosage: 10 MG, QD
     Route: 048
     Dates: start: 20151218
  4. ADCIRCA [Suspect]
     Active Substance: TADALAFIL
     Indication: PRODUCT USED FOR UNKNOWN INDICATION
     Route: 065
  5. DILTIAZEM. [Concomitant]
     Active Substance: DILTIAZEM

REACTIONS (15)
  - Fluid retention [Unknown]
  - Somnolence [Unknown]
  - Vomiting [Unknown]
  - Fluid overload [Unknown]
  - Complication associated with device [Unknown]
  - Cardiac pacemaker insertion [Unknown]
  - Asthenia [Unknown]
  - Herpes zoster [Unknown]
  - Dyspnoea [Unknown]
  - Dialysis [Unknown]
  - Rash generalised [Not Recovered/Not Resolved]
  - Hypersensitivity [Unknown]
  - Oedema peripheral [Unknown]
  - Cardiac failure congestive [Unknown]
  - Product dose omission [Unknown]

NARRATIVE: CASE EVENT DATE: 201709
